FAERS Safety Report 6782515-4 (Version None)
Quarter: 2010Q2

REPORT INFORMATION
  Report Type: 
  Country: None (occurrence: None)
  Receive Date: 20100616
  Receipt Date: 20100531
  Transmission Date: 20101027
  Serious: Yes (Other)
  Sender: FDA-Public Use
  Company Number: SG-ACCORD-005398

PATIENT
  Age: 58 Year
  Sex: Female

DRUGS (1)
  1. MITOMYCIN [Suspect]
     Indication: BRONCHOSTENOSIS

REACTIONS (4)
  - BRONCHOSTENOSIS [None]
  - DISEASE RECURRENCE [None]
  - OFF LABEL USE [None]
  - TREATMENT FAILURE [None]
